FAERS Safety Report 21422223 (Version 2)
Quarter: 2023Q1

REPORT INFORMATION
  Report Type: Spontaneous
  Country: US (occurrence: US)
  Receive Date: 20221007
  Receipt Date: 20230202
  Transmission Date: 20230418
  Serious: No
  Sender: FDA-Public Use
  Company Number: US-BRISTOL-MYERS SQUIBB COMPANY-2022-116015

PATIENT
  Age: 64 Year
  Sex: Female

DRUGS (1)
  1. POMALYST [Suspect]
     Active Substance: POMALIDOMIDE
     Indication: Plasma cell myeloma
     Dosage: FOR 21 DAYS  DAYS ON FOLLOWED BY 7DAYS OFF THEN REPEAT
     Route: 048
     Dates: start: 20220108

REACTIONS (1)
  - Oedema peripheral [Unknown]
